FAERS Safety Report 23388066 (Version 1)
Quarter: 2024Q1

REPORT INFORMATION
  Report Type: Spontaneous
  Country: US (occurrence: None)
  Receive Date: 20240109
  Receipt Date: 20240109
  Transmission Date: 20240409
  Serious: Yes (Other)
  Sender: FDA-Public Use
  Company Number: None

PATIENT
  Age: 64 Year
  Sex: Male
  Weight: 95.25 kg

DRUGS (6)
  1. ORENCIA [Suspect]
     Active Substance: ABATACEPT
     Indication: Rheumatoid arthritis
     Dosage: OTHER ROUTE : INFUSION;?
     Route: 050
     Dates: start: 20220427, end: 20220921
  2. HYDROXYCHLOROQUINE [Concomitant]
     Active Substance: HYDROXYCHLOROQUINE
  3. EPLERENONE [Concomitant]
     Active Substance: EPLERENONE
  4. TORSEMIDE [Concomitant]
     Active Substance: TORSEMIDE
  5. albumin infusions [Concomitant]
  6. INFLUENZA VIRUS VACCINE [Suspect]
     Active Substance: INFLUENZA VIRUS VACCINE

REACTIONS (5)
  - Malaise [None]
  - Contraindicated product administered [None]
  - Liver disorder [None]
  - Liver transplant [None]
  - Gastric aspiration procedure [None]

NARRATIVE: CASE EVENT DATE: 20221026
